FAERS Safety Report 10619439 (Version 3)
Quarter: 2015Q1

REPORT INFORMATION
  Report Type: Spontaneous
  Country: DE (occurrence: DE)
  Receive Date: 20141202
  Receipt Date: 20150123
  Transmission Date: 20150720
  Serious: Yes (Death, Hospitalization)
  Sender: FDA-Public Use
  Company Number: DE-ROCHE-1497515

PATIENT
  Age: 54 Year
  Sex: Female
  Weight: 72 kg

DRUGS (7)
  1. PERJETA [Suspect]
     Active Substance: PERTUZUMAB
     Indication: BREAST CANCER
     Dosage: 1 CYCLE
     Route: 042
     Dates: start: 20141118, end: 20141123
  2. HERCEPTIN [Suspect]
     Active Substance: TRASTUZUMAB
     Indication: OSTEITIS DEFORMANS
     Route: 042
     Dates: start: 20141209
  3. HERCEPTIN [Suspect]
     Active Substance: TRASTUZUMAB
     Indication: BREAST CANCER
     Route: 042
     Dates: start: 20141118, end: 20141123
  4. DOCETAXEL. [Suspect]
     Active Substance: DOCETAXEL
     Indication: BREAST CANCER
     Route: 042
     Dates: start: 20141118, end: 20141123
  5. L-THYROXIN [Concomitant]
     Active Substance: LEVOTHYROXINE SODIUM
     Indication: HYPOTHYROIDISM
     Route: 048
  6. PERJETA [Suspect]
     Active Substance: PERTUZUMAB
     Indication: OSTEITIS DEFORMANS
     Dosage: 1 CYCLE
     Route: 042
     Dates: start: 20141209
  7. DOCETAXEL. [Suspect]
     Active Substance: DOCETAXEL
     Indication: OSTEITIS DEFORMANS
     Route: 042
     Dates: start: 20141209

REACTIONS (9)
  - Hepatic failure [Fatal]
  - Coagulopathy [Fatal]
  - Herpes simplex [Unknown]
  - Pancytopenia [Unknown]
  - Urinary tract infection [Unknown]
  - Fatigue [Unknown]
  - Stomatitis [Unknown]
  - Sepsis [Fatal]
  - Renal failure [Fatal]

NARRATIVE: CASE EVENT DATE: 20141123
